FAERS Safety Report 22211123 (Version 1)
Quarter: 2023Q2

REPORT INFORMATION
  Report Type: Report from Study
  Country: US (occurrence: US)
  Receive Date: 20230414
  Receipt Date: 20230414
  Transmission Date: 20230722
  Serious: Yes (Other)
  Sender: FDA-Public Use
  Company Number: US-ABBVIE-4726300

PATIENT
  Age: 62 Year
  Sex: Female

DRUGS (2)
  1. RINVOQ [Suspect]
     Active Substance: UPADACITINIB
     Indication: Rheumatoid arthritis
     Route: 048
     Dates: start: 20210411, end: 20230313
  2. RINVOQ [Suspect]
     Active Substance: UPADACITINIB
     Indication: Rheumatoid arthritis
     Dosage: STARTED AND ENDED IN MAR 2023
     Route: 048

REACTIONS (4)
  - Oral surgery [Unknown]
  - Mobility decreased [Unknown]
  - Surgery [Unknown]
  - Pain [Unknown]

NARRATIVE: CASE EVENT DATE: 20230301
